FAERS Safety Report 8630545 (Version 3)
Quarter: 2012Q4

REPORT INFORMATION
  Report Type: 
  Country: GB (occurrence: GB)
  Receive Date: 20120622
  Receipt Date: 20121116
  Transmission Date: 20130627
  Serious: Yes (Death, Other)
  Sender: FDA-Public Use
  Company Number: GB-ROCHE-1080848

PATIENT
  Age: 74 Year
  Sex: Male
  Weight: 104.1 kg

DRUGS (7)
  1. LUCENTIS [Suspect]
     Indication: AGE-RELATED MACULAR DEGENERATION
     Route: 050
     Dates: start: 2010
  2. TAMSULOSIN [Concomitant]
  3. CANDESARTAN [Concomitant]
  4. OMEPRAZOLE [Concomitant]
  5. ASPIRIN [Concomitant]
  6. METRONIDAZOLE [Concomitant]
     Route: 065
  7. SIMVASTATIN [Concomitant]
     Route: 065

REACTIONS (11)
  - Adenocarcinoma [Fatal]
  - Metastatic neoplasm [Unknown]
  - Type 2 diabetes mellitus [Unknown]
  - Pancytopenia [Unknown]
  - Metastases to liver [Unknown]
  - Benign pancreatic neoplasm [Unknown]
  - Lung neoplasm malignant [Unknown]
  - Age-related macular degeneration [Unknown]
  - Liver function test abnormal [Unknown]
  - Abdominal pain upper [Unknown]
  - Rosacea [Unknown]
